FAERS Safety Report 9958267 (Version 1)
Quarter: 2014Q1

REPORT INFORMATION
  Report Type: Report from Study
  Country: US (occurrence: US)
  Receive Date: 20140304
  Receipt Date: 20140304
  Transmission Date: 20141002
  Serious: No
  Sender: FDA-Public Use
  Company Number: US-ABBVIE-13P-163-1093411-00

PATIENT
  Age: 63 Year
  Sex: Female

DRUGS (12)
  1. HUMIRA [Suspect]
     Indication: PSORIASIS
     Dates: start: 20130508, end: 20130508
  2. HUMIRA [Suspect]
     Dates: start: 20130515
  3. LANTUS [Concomitant]
     Indication: DIABETES MELLITUS
     Dosage: TWICE DAILY
  4. HUMULIN INSULIN [Concomitant]
     Indication: DIABETES MELLITUS
     Dosage: TWICE DAILY
  5. METFORMIN [Concomitant]
     Indication: DIABETES MELLITUS
     Dosage: TWICE DAILY
  6. HYDROCORTISONE CREAM [Concomitant]
     Indication: PSORIASIS
     Dosage: EVERY 4 HOURS AS NEEDED
  7. FOLIC ACID [Concomitant]
     Indication: PSORIASIS
     Dosage: DAILY
  8. METHOTREXATE [Concomitant]
     Indication: PSORIASIS
     Dosage: 6 PILLS WEEKLY
  9. ADVAIR [Concomitant]
     Indication: ASTHMA
  10. IBUPROFEN [Concomitant]
     Indication: PRODUCT USED FOR UNKNOWN INDICATION
  11. NISOLDIPINE XL [Concomitant]
     Indication: HYPERTENSION
  12. CYCLOBENZAPRINE [Concomitant]
     Indication: MUSCLE RELAXANT THERAPY

REACTIONS (2)
  - Skin exfoliation [Not Recovered/Not Resolved]
  - Drug effect incomplete [Not Recovered/Not Resolved]
